FAERS Safety Report 25877330 (Version 1)
Quarter: 2025Q4

REPORT INFORMATION
  Report Type: Spontaneous
  Country: US (occurrence: US)
  Receive Date: 20251003
  Receipt Date: 20251003
  Transmission Date: 20260117
  Serious: No
  Sender: ROCHE
  Company Number: US-ROCHE-10000398195

PATIENT

DRUGS (1)
  1. LUCENTIS [Suspect]
     Active Substance: RANIBIZUMAB
     Indication: Product used for unknown indication
     Dosage: 0.5 MG VIAL ACCIDENTALLY CONTAMINATED
     Route: 065

REACTIONS (2)
  - Product contamination [Unknown]
  - No adverse event [Unknown]

NARRATIVE: CASE EVENT DATE: 20250925
